FAERS Safety Report 7768727-1 (Version None)
Quarter: 2011Q3

REPORT INFORMATION
  Report Type: 
  Country: None (occurrence: None)
  Receive Date: 20110922
  Receipt Date: 20110620
  Transmission Date: 20111222
  Serious: Yes (Hospitalization)
  Sender: FDA-Public Use
  Company Number: US-ASTRAZENECA-2011SE24188

PATIENT
  Age: 69 Year
  Sex: Female
  Weight: 68 kg

DRUGS (4)
  1. KLONOPIN [Concomitant]
  2. TRAZODONE HCL [Concomitant]
  3. SEROQUEL [Suspect]
     Indication: SLEEP DISORDER
     Route: 048
  4. PLAVIX [Concomitant]

REACTIONS (2)
  - CEREBROVASCULAR ACCIDENT [None]
  - OFF LABEL USE [None]
